FAERS Safety Report 7913082-7 (Version None)
Quarter: 2011Q4

REPORT INFORMATION
  Report Type: 
  Country: None (occurrence: None)
  Receive Date: 20111114
  Receipt Date: 20111026
  Transmission Date: 20120403
  Serious: Yes (Other)
  Sender: FDA-Public Use
  Company Number: FR-VALEANT-2011VX001794

PATIENT
  Age: 38 Year
  Sex: Female

DRUGS (4)
  1. ANCOTIL [Suspect]
     Indication: ENDOCARDITIS CANDIDA
     Route: 041
     Dates: start: 20110608, end: 20110609
  2. ANCOTIL [Suspect]
     Route: 065
     Dates: start: 20110614
  3. AMBISOME [Concomitant]
     Indication: ENDOCARDITIS CANDIDA
     Route: 065
  4. ANCOTIL [Suspect]
     Route: 042
     Dates: start: 20110530, end: 20110607

REACTIONS (3)
  - MEDICATION ERROR [None]
  - DIALYSIS [None]
  - ACCIDENTAL OVERDOSE [None]
